FAERS Safety Report 23780320 (Version 7)
Quarter: 2024Q3

REPORT INFORMATION
  Report Type: Report from Study
  Country: RU (occurrence: RU)
  Receive Date: 20240424
  Receipt Date: 20240801
  Transmission Date: 20241016
  Serious: Yes (Other)
  Sender: NOVARTIS
  Company Number: RU-002147023-NVSC2024RU086088

PATIENT
  Age: 0 Year
  Sex: Female
  Weight: 5.05 kg

DRUGS (5)
  1. ZOLGENSMA [Suspect]
     Active Substance: ONASEMNOGENE ABEPARVOVEC-XIOI
     Indication: Spinal muscular atrophy
     Dosage: 27.5 UNK, ONCE/SINGLE
     Route: 041
     Dates: start: 20240405, end: 20240405
  2. PREDNISOLONE [Concomitant]
     Active Substance: PREDNISOLONE
     Indication: Product used for unknown indication
     Dosage: 1 TABLET PLUS 1/4 TABLET (6.25MG ) (ONCE A DAY IN THE MORNING)
     Route: 065
     Dates: start: 20240405
  3. ESOMEPRAZOLE [Concomitant]
     Active Substance: ESOMEPRAZOLE
     Indication: Product used for unknown indication
     Dosage: 0.5 DOSAGE FORM, QD (HALF SACHET AT BEDTIME)
     Route: 065
     Dates: start: 20240405
  4. CHOLECALCIFEROL [Concomitant]
     Active Substance: CHOLECALCIFEROL
     Indication: Product used for unknown indication
     Dosage: 1000 IU, QD (2 DROPS) QD
     Route: 065
     Dates: start: 20240405
  5. SIMETHICONE (DIMETHICONE) [Concomitant]
     Active Substance: DIMETHICONE
     Indication: Product used for unknown indication
     Dosage: 0.6 ML (15 DROPS) (PER FEEDING WITH SMALL SPOON BEFORE AND/OR DURING, AND/OR AFTER FEEDING)
     Route: 065
     Dates: start: 20240405

REACTIONS (7)
  - Blood test abnormal [Recovering/Resolving]
  - Red blood cell sedimentation rate increased [Unknown]
  - Blood urea decreased [Unknown]
  - Alanine aminotransferase decreased [Unknown]
  - Activated partial thromboplastin time prolonged [Unknown]
  - Troponin increased [Unknown]
  - Blood creatinine decreased [Unknown]

NARRATIVE: CASE EVENT DATE: 20240406
